FAERS Safety Report 4409795-4 (Version None)
Quarter: 2004Q3

REPORT INFORMATION
  Report Type: 
  Country: None (occurrence: None)
  Receive Date: 20040726
  Receipt Date: 20040712
  Transmission Date: 20050211
  Serious: Yes (Hospitalization)
  Sender: FDA-Public Use
  Company Number: F01200401922

PATIENT
  Age: 61 Year

DRUGS (8)
  1. (OXALIPLATIN) - SOLUTION - 85 MG/M2 [Suspect]
     Indication: COLORECTAL CANCER METASTATIC
     Dosage: 85 MG/M2 Q2W, INTRAVENOUS NOS
     Route: 042
     Dates: start: 20040702, end: 20040702
  2. FLUOROURACIL [Suspect]
     Dosage: 4050 MG (2250MG/M2 IN 48 HOURS, INTRAVENOUS NOS
     Route: 042
     Dates: start: 20040709, end: 20040710
  3. COLEMIN (SIMVASTATIN) [Concomitant]
  4. MINODIAB (GLIPIZIDE) [Concomitant]
  5. INSULIN [Concomitant]
  6. DUROGESIC (FENTANYL) [Concomitant]
  7. X-PREP (B AND A SENNOSID) [Concomitant]
  8. SEVREDOL (MORPHINE SULFATE) [Concomitant]

REACTIONS (4)
  - CARDIOSPASM [None]
  - CARDIOTOXICITY [None]
  - CREATINE PHOSPHOKINASE DECREASED [None]
  - ELECTROCARDIOGRAM ST SEGMENT ELEVATION [None]
